FAERS Safety Report 5664711-2 (Version None)
Quarter: 2008Q1

REPORT INFORMATION
  Report Type: 
  Country: None (occurrence: None)
  Receive Date: 20080314
  Receipt Date: 20080303
  Transmission Date: 20080703
  Serious: Yes (Hospitalization)
  Sender: FDA-Public Use
  Company Number: ES-ELI_LILLY_AND_COMPANY-ES200803000478

PATIENT
  Age: 51 Year
  Sex: Female

DRUGS (10)
  1. ALIMTA [Suspect]
     Indication: LUNG NEOPLASM MALIGNANT
     Dosage: 750 MG, UNKNOWN
     Route: 065
     Dates: start: 20070712, end: 20070712
  2. ACFOL [Concomitant]
     Dosage: 5 MG, UNKNOWN
     Route: 048
     Dates: start: 20070704
  3. OMEPRAZOLE [Concomitant]
     Dosage: 20 MG, UNKNOWN
     Route: 048
     Dates: start: 20060101
  4. NAPROSYN [Concomitant]
     Indication: TUMOUR PAIN
     Dosage: 1 G, UNKNOWN
     Route: 048
     Dates: start: 20070501
  5. DUPHALAC [Concomitant]
     Dosage: 800 ML, UNKNOWN
     Route: 048
     Dates: start: 20060101
  6. HALOPERIDOL [Concomitant]
     Dosage: 15 ML, UNKNOWN
     Route: 048
     Dates: start: 20060101
  7. SEVREDOL [Concomitant]
     Indication: TUMOUR PAIN
     Dosage: 20 MG, UNKNOWN
     Route: 048
     Dates: start: 20070201
  8. VITAMIN B-12 [Concomitant]
     Dosage: 10 MG, UNK
     Route: 048
     Dates: start: 20070101
  9. MST [Concomitant]
     Indication: TUMOUR PAIN
     Dosage: 200 MG, UNKNOWN
     Route: 048
     Dates: start: 20070201
  10. METOCLOPRAMIDE HCL [Concomitant]
     Indication: VOMITING
     Dosage: UNK, UNKNOWN
     Route: 065

REACTIONS (3)
  - ANAPHYLACTIC REACTION [None]
  - DYSPNOEA [None]
  - RASH [None]
